APPROVED DRUG PRODUCT: LINDANE
Active Ingredient: LINDANE
Strength: 1%
Dosage Form/Route: SHAMPOO;TOPICAL
Application: A087266 | Product #001
Applicant: OLTA PHARMACEUTICALS CORP
Approved: Approved Prior to Jan 1, 1982 | RLD: No | RS: No | Type: DISCN